FAERS Safety Report 8658015 (Version 2)
Quarter: 2012Q4

REPORT INFORMATION
  Report Type: 
  Country: US (occurrence: US)
  Receive Date: 20120710
  Receipt Date: 20121116
  Transmission Date: 20130627
  Serious: Yes (Hospitalization, Other)
  Sender: FDA-Public Use
  Company Number: US-BAYER-2012-068067

PATIENT
  Age: 34 Year
  Sex: Female
  Weight: 111.11 kg

DRUGS (22)
  1. OCELLA [Suspect]
     Dosage: UNK
     Dates: start: 200908, end: 20100730
  2. PROCARDIA [Concomitant]
     Dosage: UNK
     Dates: start: 2009
  3. ADVIL [Concomitant]
     Dosage: UNK
     Dates: start: 2010
  4. TYLENOL [Concomitant]
     Dosage: UNK
     Dates: start: 2010
  5. NORTRIPTYLINE [Concomitant]
     Indication: NERVE PAIN
     Dosage: 50 mg, daily
     Route: 048
     Dates: start: 2010
  6. TOPAMAX [Concomitant]
     Indication: UNEVALUABLE EVENT
     Dosage: 50 mg, daily
     Route: 048
     Dates: start: 2009
  7. REMICADE [Concomitant]
     Indication: RHEUMATOID ARTHRITIS
     Dosage: 6 mg, every 4 weeks
     Route: 042
     Dates: start: 2009
  8. METHOTREXATE [Concomitant]
     Indication: RA
     Dosage: 0.9 ml, weekly
     Route: 030
     Dates: start: 2007
  9. LEXAPRO [Concomitant]
     Indication: DEPRESSION
     Dosage: 20 mg, daily
     Route: 048
     Dates: start: 2008
  10. FOLIC ACID [Concomitant]
     Indication: RA
     Dosage: 1 mg, daily
     Route: 048
     Dates: start: 2007
  11. FISH OIL [Concomitant]
     Indication: ANTIINFLAMMATORY THERAPY
     Dosage: 1 DF, daily
     Dates: start: 20100710, end: 20100730
  12. PROCARDIA XL [Concomitant]
     Dosage: 25 mg, daily
     Route: 048
  13. LOESTRIN FE [Concomitant]
     Dosage: 1 DF, daily
     Route: 048
  14. ISONIAZID [Concomitant]
     Dosage: 300 mg, daily
     Route: 048
  15. FLEXERIL [Concomitant]
     Dosage: 10 mg, PRN
     Route: 048
  16. NORCO [Concomitant]
     Dosage: 10 mg/325 mg q4-6h PRN
     Route: 048
  17. MEDROL [Concomitant]
     Dosage: 8 mg, daily
     Route: 048
  18. TREXIMET [Concomitant]
     Dosage: 85/500 daily
     Route: 048
  19. EVOXAC [Concomitant]
     Dosage: 30 mg, TID
     Route: 048
  20. RESTASIS [Concomitant]
     Dosage: 1 drop Q12 hr as needed
     Route: 047
  21. METHYLPREDNISOLONE [Concomitant]
     Dosage: 16 mg, daily
     Route: 048
  22. ACTONEL [Concomitant]
     Dosage: 150 mg, Q1MON
     Route: 048

REACTIONS (8)
  - Pulmonary embolism [None]
  - Pneumonia [None]
  - Pulmonary fibrosis [None]
  - Injury [None]
  - Pain [None]
  - Fear of disease [None]
  - Pleural effusion [None]
  - Pleuritic pain [None]
